FAERS Safety Report 5831172-X (Version None)
Quarter: 2008Q3

REPORT INFORMATION
  Report Type: 
  Country: None (occurrence: None)
  Receive Date: 20080801
  Receipt Date: 20080529
  Transmission Date: 20090109
  Serious: No
  Sender: FDA-Public Use
  Company Number: US-BRISTOL-MYERS SQUIBB COMPANY-14185995

PATIENT
  Age: 81 Year
  Sex: Female
  Weight: 59 kg

DRUGS (5)
  1. WARFARIN SODIUM [Suspect]
     Dates: start: 20080101, end: 20080101
  2. LANOXIN [Concomitant]
  3. COREG [Concomitant]
  4. LASIX [Concomitant]
  5. SPIRONOLACTONE [Concomitant]

REACTIONS (2)
  - PARAESTHESIA [None]
  - SKIN DISCOLOURATION [None]
